FAERS Safety Report 12991726 (Version 1)
Quarter: 2016Q4

REPORT INFORMATION
  Report Type: Not Available
  Country: US (occurrence: US)
  Receive Date: 20161201
  Receipt Date: 20161201
  Transmission Date: 20170207
  Serious: Yes (Other)
  Sender: FDA-Public Use
  Company Number: US-ANIPHARMA-2016-US-008417

PATIENT
  Age: 68 Year
  Sex: Male
  Weight: 90.72 kg

DRUGS (1)
  1. FLECAINIDE ACETATE TABLETS 100 MG [Suspect]
     Active Substance: FLECAINIDE ACETATE
     Dosage: 1 TABLET TWICE DAILY
     Route: 048
     Dates: start: 201606, end: 201610

REACTIONS (2)
  - Palpitations [Not Recovered/Not Resolved]
  - Atrial fibrillation [Unknown]

NARRATIVE: CASE EVENT DATE: 201606
